FAERS Safety Report 14388469 (Version 1)
Quarter: 2018Q1

REPORT INFORMATION
  Report Type: Spontaneous
  Country: US (occurrence: US)
  Receive Date: 20180115
  Receipt Date: 20180115
  Transmission Date: 20180509
  Serious: No
  Sender: FDA-Public Use
  Company Number: US-TARO-2017TAR00004

PATIENT
  Age: 26 Year
  Sex: Male

DRUGS (4)
  1. FINASTERIDE. [Concomitant]
     Active Substance: FINASTERIDE
     Dosage: UNK
     Dates: start: 2016
  2. ECONAZOLE NITRATE CREAM 1% [Suspect]
     Active Substance: ECONAZOLE NITRATE
     Indication: TINEA CRURIS
     Dosage: UNK, ONCE
     Route: 061
     Dates: start: 20161231, end: 20161231
  3. ECONAZOLE NITRATE CREAM 1% [Suspect]
     Active Substance: ECONAZOLE NITRATE
     Dosage: UNK, UNK
     Dates: start: 2016, end: 2016
  4. MINOXIDIL. [Concomitant]
     Active Substance: MINOXIDIL
     Dosage: UNK
     Dates: start: 2016

REACTIONS (3)
  - Wrong drug administered [Recovered/Resolved]
  - Tinea cruris [Recovered/Resolved]
  - Alopecia [Not Recovered/Not Resolved]

NARRATIVE: CASE EVENT DATE: 2016
